FAERS Safety Report 14998010 (Version 1)
Quarter: 2018Q2

REPORT INFORMATION
  Report Type: Spontaneous
  Country: US (occurrence: US)
  Receive Date: 20180520
  Receipt Date: 20180520
  Transmission Date: 20180711
  Serious: Yes (Hospitalization)
  Sender: FDA-Public Use
  Company Number: None

PATIENT
  Age: 48 Year
  Sex: Female
  Weight: 97.2 kg

DRUGS (6)
  1. METHOTREXATE. [Suspect]
     Active Substance: METHOTREXATE
     Dates: end: 20180426
  2. CYTARABINE. [Suspect]
     Active Substance: CYTARABINE
     Dates: end: 20180412
  3. VINCRISTINE SULFATE. [Suspect]
     Active Substance: VINCRISTINE SULFATE
     Dates: end: 20180503
  4. DAUNORUBICIN [Suspect]
     Active Substance: DAUNORUBICIN
     Dates: end: 20180503
  5. ONCASPAR [Suspect]
     Active Substance: PEGASPARGASE
     Dates: end: 20180430
  6. DEXAMETHASONE. [Suspect]
     Active Substance: DEXAMETHASONE
     Dates: end: 20180502

REACTIONS (14)
  - Nausea [None]
  - Hyperbilirubinaemia [None]
  - Toxicity to various agents [None]
  - Blood creatinine increased [None]
  - Blood bilirubin increased [None]
  - Alanine aminotransferase increased [None]
  - Blood urea increased [None]
  - Abdominal pain [None]
  - Vomiting [None]
  - Pain [None]
  - Hepatotoxicity [None]
  - Blood alkaline phosphatase increased [None]
  - Hepatic steatosis [None]
  - Diarrhoea [None]

NARRATIVE: CASE EVENT DATE: 20180511
